FAERS Safety Report 5721264-8 (Version None)
Quarter: 2008Q2

REPORT INFORMATION
  Report Type: 
  Country: None (occurrence: None)
  Receive Date: 20080424
  Receipt Date: 20080415
  Transmission Date: 20081010
  Serious: Yes (Other)
  Sender: FDA-Public Use
  Company Number: 19125

PATIENT
  Sex: Female

DRUGS (1)
  1. PACLITAXEL HOSPIRA [Suspect]
     Dates: start: 20080325, end: 20080325

REACTIONS (4)
  - DYSPNOEA [None]
  - ERYTHEMA [None]
  - HYPERHIDROSIS [None]
  - OEDEMA [None]
